FAERS Safety Report 6746059-8 (Version None)
Quarter: 2010Q2

REPORT INFORMATION
  Report Type: 
  Country: None (occurrence: None)
  Receive Date: 20100528
  Receipt Date: 20100518
  Transmission Date: 20101027
  Serious: Yes (Hospitalization, Disabling)
  Sender: FDA-Public Use
  Company Number: FR-ABBOTT-10P-056-0646154-00

PATIENT
  Age: 42 Year
  Sex: Female
  Weight: 66 kg

DRUGS (16)
  1. DEPAKOTE [Suspect]
     Indication: DRUG USE FOR UNKNOWN INDICATION
     Route: 048
     Dates: start: 20080730, end: 20080918
  2. MARAVIROC [Suspect]
     Indication: HIV TEST POSITIVE
     Route: 048
     Dates: start: 20080822, end: 20080916
  3. MARAVIROC [Suspect]
     Dates: start: 20080922
  4. RALTEGRAVIR [Concomitant]
     Indication: HIV TEST POSITIVE
     Dates: start: 20080822, end: 20080917
  5. RALTEGRAVIR [Concomitant]
     Dates: start: 20080822, end: 20080917
  6. DARUNAVIR [Concomitant]
     Indication: DRUG USE FOR UNKNOWN INDICATION
     Dates: start: 20080822, end: 20080917
  7. RITONAVIR [Concomitant]
     Indication: DRUG USE FOR UNKNOWN INDICATION
     Dates: start: 20080822, end: 20080917
  8. RITONAVIR [Concomitant]
     Dates: start: 20080822, end: 20080917
  9. LAMIVUDINE [Concomitant]
     Indication: DRUG USE FOR UNKNOWN INDICATION
     Dates: start: 20080822, end: 20080917
  10. ZYPREXA [Concomitant]
     Indication: DRUG USE FOR UNKNOWN INDICATION
     Dates: start: 20070723, end: 20080919
  11. RIVOTRIL [Concomitant]
     Indication: DRUG USE FOR UNKNOWN INDICATION
     Dates: start: 20080813, end: 20080919
  12. ATOVAQUONE [Concomitant]
     Indication: DRUG USE FOR UNKNOWN INDICATION
     Dates: start: 20080716, end: 20080919
  13. THERALENE [Concomitant]
     Indication: DRUG USE FOR UNKNOWN INDICATION
     Dates: start: 20080723, end: 20080919
  14. TERCIAN [Concomitant]
     Indication: DRUG USE FOR UNKNOWN INDICATION
     Dates: start: 20080812, end: 20080919
  15. DIAMICRON [Concomitant]
     Indication: DRUG USE FOR UNKNOWN INDICATION
     Dates: start: 20071126, end: 20080919
  16. ACTOS [Concomitant]
     Indication: DRUG USE FOR UNKNOWN INDICATION
     Dates: start: 20071126, end: 20080919

REACTIONS (2)
  - ERYSIPELAS [None]
  - NEUTROPENIA [None]
